FAERS Safety Report 8806930 (Version 1)
Quarter: 2012Q4

REPORT INFORMATION
  Report Type: 
  Country: US (occurrence: US)
  Receive Date: 20120925
  Receipt Date: 20120925
  Transmission Date: 20130627
  Serious: Yes (Death, Hospitalization)
  Sender: FDA-Public Use
  Company Number: US-ROCHE-1107547

PATIENT
  Sex: Female

DRUGS (2)
  1. TARCEVA [Suspect]
     Indication: PANCREATIC CARCINOMA
  2. AVASTIN [Suspect]
     Indication: PANCREATIC CARCINOMA
     Route: 065

REACTIONS (3)
  - Death [Fatal]
  - Dehydration [Unknown]
  - Rash [Unknown]
